FAERS Safety Report 25079238 (Version 4)
Quarter: 2025Q3

REPORT INFORMATION
  Report Type: Spontaneous
  Country: US (occurrence: US)
  Receive Date: 20250314
  Receipt Date: 20250926
  Transmission Date: 20251021
  Serious: No
  Sender: BRISTOL-MYERS SQUIBB COMPANY
  Company Number: US-BRISTOL-MYERS SQUIBB COMPANY-2025-038561

PATIENT
  Age: 71 Year
  Sex: Male

DRUGS (3)
  1. POMALYST [Suspect]
     Active Substance: POMALIDOMIDE
     Indication: Dementia
     Dosage: 1-21 DAYS
  2. POMALYST [Suspect]
     Active Substance: POMALIDOMIDE
     Dosage: 1-21 DAYS, WITH OR WITHOUT FOOD
  3. POMALYST [Suspect]
     Active Substance: POMALIDOMIDE

REACTIONS (6)
  - Vomiting [Not Recovered/Not Resolved]
  - Off label use [Unknown]
  - Product use issue [Unknown]
  - Product distribution issue [Unknown]
  - Therapy interrupted [Unknown]
  - Product physical issue [Unknown]
